APPROVED DRUG PRODUCT: SULFAMETHOXAZOLE AND TRIMETHOPRIM
Active Ingredient: SULFAMETHOXAZOLE; TRIMETHOPRIM
Strength: 80MG/ML;16MG/ML
Dosage Form/Route: INJECTABLE;INJECTION
Application: A206607 | Product #001 | TE Code: AP
Applicant: PHARMOBEDIENT CONSULTING LLC
Approved: Aug 30, 2017 | RLD: No | RS: Yes | Type: RX